FAERS Safety Report 15343751 (Version 7)
Quarter: 2021Q1

REPORT INFORMATION
  Report Type: Spontaneous
  Country: US (occurrence: US)
  Receive Date: 20180903
  Receipt Date: 20210211
  Transmission Date: 20210419
  Serious: Yes (Other)
  Sender: FDA-Public Use
  Company Number: US-PFIZER INC-2018354167

PATIENT
  Age: 65 Year
  Sex: Male

DRUGS (8)
  1. LYRICA [Suspect]
     Active Substance: PREGABALIN
     Indication: SPINAL CORD INJURY
     Dosage: 300 MG
  2. LYRICA CR [Suspect]
     Active Substance: PREGABALIN
     Dosage: 330 MG, 1X/DAY (1 TAB(S) ONCE A DAY (IN THE EVENING))
     Route: 048
  3. AUGMENTIN [Concomitant]
     Active Substance: AMOXICILLIN\CLAVULANATE POTASSIUM
     Dosage: UNK
     Dates: start: 20180629, end: 2018
  4. LYRICA [Suspect]
     Active Substance: PREGABALIN
     Indication: PAIN
     Dosage: UNK, 2X/DAY (225?300MG)
     Dates: start: 2013
  5. LYRICA [Suspect]
     Active Substance: PREGABALIN
     Dosage: 225 MG
  6. LEVOFLOXACIN. [Concomitant]
     Active Substance: LEVOFLOXACIN
     Dosage: UNK
     Dates: start: 20180811, end: 2018
  7. LYRICA CR [Suspect]
     Active Substance: PREGABALIN
     Indication: PAIN
     Dosage: 82.5 MG, 1X/DAY (1 TAB(S) ONCE A DAY (IN THE EVENING))
     Route: 048
  8. OXYCODONE [Concomitant]
     Active Substance: OXYCODONE
     Dosage: UNK

REACTIONS (21)
  - Scoliosis [Unknown]
  - Insomnia [Recovered/Resolved]
  - Injury [Unknown]
  - Bronchitis [Recovered/Resolved]
  - Neck mass [Unknown]
  - Disease recurrence [Unknown]
  - Cervical vertebral fracture [Unknown]
  - Panic attack [Unknown]
  - Intentional product use issue [Unknown]
  - Dyspnoea [Recovered/Resolved]
  - Emphysema [Unknown]
  - Dysphagia [Unknown]
  - Neck pain [Unknown]
  - Torticollis [Unknown]
  - Eye disorder [Unknown]
  - Post-traumatic stress disorder [Unknown]
  - Cerebrovascular accident [Unknown]
  - Laryngeal injury [Unknown]
  - Fall [Unknown]
  - Rib fracture [Unknown]
  - Eating disorder [Unknown]

NARRATIVE: CASE EVENT DATE: 2020
